FAERS Safety Report 9160483 (Version 2)
Quarter: 2013Q2

REPORT INFORMATION
  Report Type: Spontaneous
  Country: IT (occurrence: None)
  Receive Date: 20130219
  Receipt Date: 20130415
  Transmission Date: 20140414
  Serious: Yes (Hospitalization)
  Sender: FDA-Public Use
  Company Number: IT-010848

PATIENT
  Age: 84 Year
  Sex: Male
  Weight: 82 kg

DRUGS (11)
  1. DEGARELIX [Suspect]
     Indication: PROSTATE CANCER
     Route: 058
     Dates: start: 20121017, end: 20121017
  2. RAMIPRIL [Concomitant]
  3. VERAPAMIL [Concomitant]
  4. TAMSULOSIN [Concomitant]
  5. DUTASTERIDE [Concomitant]
  6. ALLOPURINOL [Concomitant]
  7. WARFARIN [Concomitant]
  8. TROXERUTIN [Concomitant]
  9. SIMVASTATIN [Concomitant]
  10. LANSOPRAZOLE [Concomitant]
  11. BICALUTAMIDE [Concomitant]

REACTIONS (1)
  - Cardiac failure [None]
